FAERS Safety Report 23905100 (Version 2)
Quarter: 2025Q2

REPORT INFORMATION
  Report Type: Spontaneous
  Country: AT (occurrence: AT)
  Receive Date: 20240527
  Receipt Date: 20250521
  Transmission Date: 20250716
  Serious: Yes (Other)
  Sender: JOHNSON AND JOHNSON
  Company Number: AT-ABBVIE-5758770

PATIENT
  Age: 25 Year
  Sex: Male

DRUGS (11)
  1. STELARA [Suspect]
     Active Substance: USTEKINUMAB
     Indication: Product used for unknown indication
     Route: 058
     Dates: start: 2018, end: 2020
  2. REMICADE [Suspect]
     Active Substance: INFLIXIMAB
     Indication: Product used for unknown indication
     Route: 041
     Dates: start: 202011
  3. RINVOQ [Suspect]
     Active Substance: UPADACITINIB
     Indication: Crohn^s disease
     Route: 048
     Dates: start: 2022, end: 202309
  4. HUMIRA [Suspect]
     Active Substance: ADALIMUMAB
     Indication: Crohn^s disease
     Route: 058
     Dates: start: 2013, end: 201603
  5. ENTYVIO [Suspect]
     Active Substance: VEDOLIZUMAB
     Indication: Product used for unknown indication
     Dates: start: 201603, end: 201805
  6. AZATHIOPRINE [Suspect]
     Active Substance: AZATHIOPRINE
     Indication: Product used for unknown indication
     Dates: start: 202102
  7. SKYRIZI [Suspect]
     Active Substance: RISANKIZUMAB-RZAA
     Indication: Crohn^s disease
     Route: 058
  8. SKYRIZI [Suspect]
     Active Substance: RISANKIZUMAB-RZAA
     Indication: Crohn^s disease
     Route: 042
     Dates: start: 20231009, end: 20231009
  9. SKYRIZI [Suspect]
     Active Substance: RISANKIZUMAB-RZAA
     Route: 042
     Dates: start: 20231106, end: 20231106
  10. SKYRIZI [Suspect]
     Active Substance: RISANKIZUMAB-RZAA
     Route: 042
     Dates: start: 20231212, end: 20231212
  11. BUDESONIDE [Concomitant]
     Active Substance: BUDESONIDE
     Indication: Subileus

REACTIONS (29)
  - Colitis ulcerative [Unknown]
  - Crohn^s disease [Unknown]
  - Lupus-like syndrome [Unknown]
  - Subileus [Unknown]
  - Small intestinal resection [Unknown]
  - Stenosis [Unknown]
  - Ileostomy [Unknown]
  - Abdominal adhesions [Unknown]
  - Intestinal stenosis [Unknown]
  - Intestinal ulcer [Unknown]
  - Ileocaecal resection [Unknown]
  - Unevaluable event [Unknown]
  - Therapeutic product effect decreased [Unknown]
  - Faecal calprotectin increased [Recovered/Resolved]
  - Abdominal pain [Unknown]
  - Faecal calprotectin increased [Recovered/Resolved]
  - Faecal calprotectin increased [Unknown]
  - Gastrointestinal disorder [Unknown]
  - Off label use [Unknown]
  - Inflammation [Unknown]
  - Gastrointestinal wall thickening [Unknown]
  - Arthropathy [Unknown]
  - Unevaluable event [Unknown]
  - Gastrointestinal wall thickening [Unknown]
  - Therapeutic product effect decreased [Unknown]
  - Unevaluable event [Unknown]
  - Therapeutic product effect decreased [Unknown]
  - Therapeutic product effect decreased [Unknown]
  - Gastrointestinal inflammation [Unknown]

NARRATIVE: CASE EVENT DATE: 20130401
